FAERS Safety Report 17751385 (Version 1)
Quarter: 2020Q2

REPORT INFORMATION
  Report Type: Spontaneous
  Country: US (occurrence: US)
  Receive Date: 20200506
  Receipt Date: 20200506
  Transmission Date: 20200714
  Serious: No
  Sender: FDA-Public Use
  Company Number: US-SA-2020SA113244

PATIENT
  Age: 59 Year
  Sex: Female

DRUGS (1)
  1. DUPIXENT [Suspect]
     Active Substance: DUPILUMAB
     Indication: DERMATITIS ATOPIC
     Dosage: 1 DF, QOW
     Dates: start: 2020

REACTIONS (6)
  - Joint stiffness [Unknown]
  - Arthralgia [Unknown]
  - Insomnia [Unknown]
  - Knee operation [Unknown]
  - Paraesthesia [Unknown]
  - Headache [Unknown]
